FAERS Safety Report 5477928-7 (Version None)
Quarter: 2007Q4

REPORT INFORMATION
  Report Type: 
  Country: None (occurrence: None)
  Receive Date: 20071005
  Receipt Date: 20070926
  Transmission Date: 20080405
  Serious: Yes (Other)
  Sender: FDA-Public Use
  Company Number: PHBS2007BR16070

PATIENT
  Age: 26 Year
  Sex: Female

DRUGS (6)
  1. TEGRETOL [Suspect]
     Indication: CONVULSION
     Dosage: 600 MG, BID
     Route: 048
     Dates: start: 20000101, end: 20020101
  2. TEGRETOL [Suspect]
     Dosage: 400 MG, BID
     Route: 048
     Dates: start: 20070701
  3. TEGRETOL CR [Suspect]
     Indication: CONVULSION
     Dosage: 200 MG, BID
     Route: 048
     Dates: start: 20030101, end: 20050101
  4. TEGRETOL CR [Suspect]
     Route: 048
     Dates: start: 20060101, end: 20070101
  5. GARDAN TAB [Concomitant]
     Indication: CONVULSION
     Dosage: 100 MG, BID
     Route: 048
  6. RIVOTRIL [Concomitant]
     Dosage: 2.5 MG

REACTIONS (16)
  - ABORTION SPONTANEOUS [None]
  - BLINDNESS UNILATERAL [None]
  - CAESAREAN SECTION [None]
  - CHROMATURIA [None]
  - CONVULSION [None]
  - CRANIAL NERVE DISORDER [None]
  - DECREASED INTEREST [None]
  - DRUG EXPOSURE DURING PREGNANCY [None]
  - MEMORY IMPAIRMENT [None]
  - MICTURITION FREQUENCY DECREASED [None]
  - MYALGIA [None]
  - PAIN [None]
  - PYREXIA [None]
  - SOMNOLENCE [None]
  - UTERINE INFECTION [None]
  - VAGINAL DISCHARGE [None]
